FAERS Safety Report 4271501-4 (Version None)
Quarter: 2004Q1

REPORT INFORMATION
  Report Type: 
  Country: None (occurrence: None)
  Receive Date: 20040113
  Receipt Date: 20040106
  Transmission Date: 20041129
  Serious: Yes (Hospitalization)
  Sender: FDA-Public Use
  Company Number: TPA2003A01222

PATIENT
  Age: 71 Year
  Sex: Male
  Weight: 72.5755 kg

DRUGS (9)
  1. ACTOS [Suspect]
     Indication: DIABETES MELLITUS NON-INSULIN-DEPENDENT
     Dosage: 15 MG, 1 IN 1 D, PER ORAL
     Route: 048
     Dates: start: 20010919
  2. REGULAR INSULIN [Concomitant]
  3. NPH INSULIN [Concomitant]
  4. COUMADIN [Concomitant]
  5. LANOXIN (DIGOXIN) (0.25 MILLIGRAM) [Concomitant]
  6. COZAAR (LOSARTAN POTASSIUM) (50 MILLIGRAM) [Concomitant]
  7. ZOCOR(SIMVASTATIN) (80 MILLIGRAM) [Concomitant]
  8. DARVOCET-N(PROPACET) [Concomitant]
  9. RESTORIL [Concomitant]

REACTIONS (15)
  - ACTIVITIES OF DAILY LIVING IMPAIRED [None]
  - ARRHYTHMIA [None]
  - ASTHENIA [None]
  - BALANCE DISORDER [None]
  - CARDIAC MURMUR [None]
  - CARDIOMYOPATHY [None]
  - CIRCULATORY COLLAPSE [None]
  - CORONARY ARTERY STENOSIS [None]
  - DIABETIC NEUROPATHY [None]
  - HEART RATE INCREASED [None]
  - LOSS OF CONSCIOUSNESS [None]
  - PERIARTHRITIS [None]
  - ROTATOR CUFF SYNDROME [None]
  - SYNCOPE [None]
  - UPPER LIMB FRACTURE [None]
